FAERS Safety Report 24288101 (Version 1)
Quarter: 2024Q3

REPORT INFORMATION
  Report Type: Spontaneous
  Country: US (occurrence: US)
  Receive Date: 20240905
  Receipt Date: 20240905
  Transmission Date: 20241017
  Serious: No
  Sender: JOHNSON AND JOHNSON
  Company Number: US-JNJFOC-20240903610

PATIENT
  Age: 84 Year
  Sex: Male
  Weight: 93.4 kg

DRUGS (29)
  1. OPSUMIT [Suspect]
     Active Substance: MACITENTAN
     Indication: Product used for unknown indication
     Route: 048
  2. TREPROSTINIL [Suspect]
     Active Substance: TREPROSTINIL
     Indication: Pulmonary arterial hypertension
     Route: 048
     Dates: start: 20230111
  3. TREPROSTINIL [Suspect]
     Active Substance: TREPROSTINIL
     Route: 048
  4. FUROSEMIDE [Concomitant]
     Active Substance: FUROSEMIDE
  5. DILTIAZEM [Concomitant]
     Active Substance: DILTIAZEM
  6. SPIRIVA [Concomitant]
     Active Substance: TIOTROPIUM BROMIDE MONOHYDRATE
  7. CENTRUM SILVER [ASCORBIC ACID;CALCIUM;MINERALS NOS;RETINOL;TOCOPHERYL [Concomitant]
  8. TAMSULOSIN HYDROCHLORIDE [Concomitant]
     Active Substance: TAMSULOSIN HYDROCHLORIDE
  9. KLOR-CON/EF [Concomitant]
     Active Substance: POTASSIUM BICARBONATE
  10. METAMUCIL THERAPY FOR REGULARITY [Concomitant]
     Active Substance: PSYLLIUM HUSK
  11. TOZINAMERAN [Concomitant]
     Active Substance: TOZINAMERAN
  12. ASCORBIC ACID [Concomitant]
     Active Substance: ASCORBIC ACID
  13. UBIDECARENONE [Concomitant]
     Active Substance: UBIDECARENONE
  14. POMEGRANATE [PUNICA GRANATUM] [Concomitant]
  15. CALCIUM\CHOLECALCIFEROL\MINERALS [Concomitant]
     Active Substance: CALCIUM\CHOLECALCIFEROL\MINERALS
  16. PANTETHINE [Concomitant]
     Active Substance: PANTETHINE
  17. DIETARY SUPPLEMENT\RESVERATROL [Concomitant]
     Active Substance: DIETARY SUPPLEMENT\RESVERATROL
  18. ARTROTIN [CHONDROITIN SULFATE;COLLAGEN;GLUCOSAMINE] [Concomitant]
  19. OXYGEN [Concomitant]
     Active Substance: OXYGEN
  20. OCUVITE [ASCORBIC ACID;RETINOL;TOCOPHEROL] [Concomitant]
  21. ACETAMINOPHEN [Concomitant]
     Active Substance: ACETAMINOPHEN
  22. KRILL OIL [Concomitant]
     Active Substance: DIETARY SUPPLEMENT\KRILL OIL
  23. LOPERAMIDE [Concomitant]
     Active Substance: LOPERAMIDE
  24. TORSEMIDE [Concomitant]
     Active Substance: TORSEMIDE
  25. ASPIRIN [Concomitant]
     Active Substance: ASPIRIN
  26. TOPROL XL [Concomitant]
     Active Substance: METOPROLOL SUCCINATE
  27. SYMBICORT [Concomitant]
     Active Substance: BUDESONIDE\FORMOTEROL FUMARATE DIHYDRATE
  28. VITAMIN B COMPLEX [Concomitant]
     Active Substance: CYANOCOBALAMIN\DEXPANTHENOL\NIACINAMIDE\PYRIDOXINE HYDROCHLORIDE\RIBOFLAVIN 5^-PHOSPHATE SODIUM\THIA
  29. VITAMIN D3 [Concomitant]
     Active Substance: CHOLECALCIFEROL

REACTIONS (6)
  - Chest pain [Unknown]
  - Abdominal pain upper [Unknown]
  - Gastrointestinal sounds abnormal [Unknown]
  - Flatulence [Unknown]
  - Eructation [Unknown]
  - Constipation [Not Recovered/Not Resolved]
